FAERS Safety Report 7741952-1 (Version None)
Quarter: 2011Q3

REPORT INFORMATION
  Report Type: 
  Country: None (occurrence: None)
  Receive Date: 20110901
  Receipt Date: 20110823
  Transmission Date: 20111222
  Serious: Yes (Other)
  Sender: FDA-Public Use
  Company Number: 7078971

PATIENT
  Age: 28 Year
  Sex: Female

DRUGS (2)
  1. LEVOTHYROXINE SODIUM [Suspect]
     Indication: HYPOTHYROIDISM
     Dosage: 100, 75 MCG (75 MCG, 1 IN 1 D), ORAL
     Route: 048
     Dates: start: 20100101, end: 20110801
  2. LEVOTHYROXINE SODIUM [Suspect]
     Indication: HYPOTHYROIDISM
     Dosage: 100, 75 MCG (75 MCG, 1 IN 1 D), ORAL
     Route: 048
     Dates: start: 20110801, end: 20110822

REACTIONS (1)
  - HYPERTHYROIDISM [None]
